FAERS Safety Report 14983716 (Version 1)
Quarter: 2018Q2

REPORT INFORMATION
  Report Type: Spontaneous
  Country: DE (occurrence: DE)
  Receive Date: 20180607
  Receipt Date: 20180607
  Transmission Date: 20180711
  Serious: Yes (Congenital Anomaly)
  Sender: FDA-Public Use
  Company Number: DE-ALLERGAN-1829367US

PATIENT
  Age: 1 Day
  Sex: Male
  Weight: 1.1 kg

DRUGS (4)
  1. CITALOPRAM HYDROBROMIDE - BP [Suspect]
     Active Substance: CITALOPRAM HYDROBROMIDE
     Indication: MATERNAL EXPOSURE TIMING UNSPECIFIED
     Dosage: 10 MG, QOD
     Route: 064
  2. QUILONUM [Suspect]
     Active Substance: LITHIUM CARBONATE
     Indication: MATERNAL EXPOSURE TIMING UNSPECIFIED
     Dosage: 1125 MG, QD (450-0-675 MG)
     Route: 064
     Dates: start: 20161205, end: 20170620
  3. BETAMETHASONE. [Concomitant]
     Active Substance: BETAMETHASONE
     Indication: MATERNAL EXPOSURE TIMING UNSPECIFIED
     Dosage: UNK
     Route: 064
     Dates: start: 20170616, end: 20170617
  4. FOLIC ACID W/VITAMIN B12 [Concomitant]
     Indication: MATERNAL EXPOSURE TIMING UNSPECIFIED
     Dosage: 0.4 MG, QD
     Route: 064
     Dates: start: 20161205, end: 20170202

REACTIONS (7)
  - Patent ductus arteriosus [Recovered/Resolved]
  - Cardiac aneurysm [Unknown]
  - Nephrocalcinosis [Unknown]
  - Ventricular septal defect [Not Recovered/Not Resolved]
  - Neonatal respiratory distress syndrome [Recovered/Resolved]
  - Atrial septal defect [Recovered/Resolved]
  - Foetal exposure during pregnancy [Unknown]

NARRATIVE: CASE EVENT DATE: 20170620
